FAERS Safety Report 8406987-4 (Version None)
Quarter: 2012Q2

REPORT INFORMATION
  Report Type: 
  Country: None (occurrence: None)
  Receive Date: 20120604
  Receipt Date: 20120524
  Transmission Date: 20120825
  Serious: Yes (Other)
  Sender: FDA-Public Use
  Company Number: BR-AMGEN-BRASP2012032495

PATIENT
  Age: 57 Year
  Sex: Female
  Weight: 77 kg

DRUGS (6)
  1. HUMIRA [Suspect]
     Dosage: 40 MG, EVERY 15 DAYS
     Dates: start: 20120411
  2. HYDROXYCHLOROQUINE SULFATE [Concomitant]
     Indication: ARTHRITIS
     Dosage: ONE TABLET DAILY
  3. REUQUINOL [Suspect]
     Dosage: UNK
  4. ENBREL [Suspect]
     Indication: RHEUMATOID ARTHRITIS
     Dosage: UNK
     Route: 058
     Dates: start: 20110401, end: 20111001
  5. HUMIRA [Suspect]
     Indication: RHEUMATOID ARTHRITIS
     Dosage: 40 MG, WEEKLY
     Dates: start: 20110201, end: 20110401
  6. HYDROXYCHLOROQUINE SULFATE [Concomitant]
     Dosage: ONE TABLET DAILY

REACTIONS (17)
  - NODULE [None]
  - BURNING SENSATION [None]
  - ERYTHEMA [None]
  - RIB FRACTURE [None]
  - FINGER DEFORMITY [None]
  - JOINT CONTRACTURE [None]
  - BONE DISORDER [None]
  - ARTHRALGIA [None]
  - FOOT DEFORMITY [None]
  - SPINAL PAIN [None]
  - DYSPNOEA [None]
  - PARAESTHESIA [None]
  - JOINT SWELLING [None]
  - BONE DECALCIFICATION [None]
  - PAIN [None]
  - HYPERSENSITIVITY [None]
  - MUSCULOSKELETAL STIFFNESS [None]
